FAERS Safety Report 20155942 (Version 13)
Quarter: 2023Q4

REPORT INFORMATION
  Report Type: Report from Study
  Country: CA (occurrence: CA)
  Receive Date: 20211207
  Receipt Date: 20231204
  Transmission Date: 20240109
  Serious: Yes (Other)
  Sender: FDA-Public Use
  Company Number: CA-TAKEDA-2021TUS016425

PATIENT
  Age: 33 Year
  Sex: Female

DRUGS (26)
  1. VEDOLIZUMAB [Suspect]
     Active Substance: VEDOLIZUMAB
     Indication: Crohn^s disease
     Dosage: 300 MILLIGRAM
     Route: 042
     Dates: start: 20210309
  2. VEDOLIZUMAB [Suspect]
     Active Substance: VEDOLIZUMAB
     Dosage: 300 MILLIGRAM
     Route: 042
  3. VEDOLIZUMAB [Suspect]
     Active Substance: VEDOLIZUMAB
     Dosage: 300 MILLIGRAM
     Route: 042
  4. VEDOLIZUMAB [Suspect]
     Active Substance: VEDOLIZUMAB
     Dosage: 300 MILLIGRAM
     Route: 042
  5. VEDOLIZUMAB [Suspect]
     Active Substance: VEDOLIZUMAB
     Dosage: 300 MILLIGRAM
     Route: 042
  6. VEDOLIZUMAB [Suspect]
     Active Substance: VEDOLIZUMAB
     Dosage: 300 MILLIGRAM
     Route: 042
  7. VEDOLIZUMAB [Suspect]
     Active Substance: VEDOLIZUMAB
     Dosage: 300 MILLIGRAM
     Route: 042
  8. VEDOLIZUMAB [Suspect]
     Active Substance: VEDOLIZUMAB
     Dosage: 300 MILLIGRAM
     Route: 042
  9. VEDOLIZUMAB [Suspect]
     Active Substance: VEDOLIZUMAB
     Dosage: 300 MILLIGRAM
     Route: 042
  10. VEDOLIZUMAB [Suspect]
     Active Substance: VEDOLIZUMAB
     Dosage: 300 MILLIGRAM, Q4WEEKS
     Route: 042
     Dates: start: 20230711
  11. VEDOLIZUMAB [Suspect]
     Active Substance: VEDOLIZUMAB
     Dosage: 300 MILLIGRAM, Q4WEEKS
     Route: 042
  12. VEDOLIZUMAB [Suspect]
     Active Substance: VEDOLIZUMAB
     Dosage: 300 MILLIGRAM, Q4WEEKS
     Route: 042
     Dates: end: 20231031
  13. ESTROGENS [Concomitant]
     Active Substance: ESTROGENS
     Dosage: UNK
  14. GLYBURIDE [Concomitant]
     Active Substance: GLYBURIDE
     Indication: Diabetes mellitus
     Dosage: 5 MILLIGRAM
     Route: 048
  15. CYMBALTA [Concomitant]
     Active Substance: DULOXETINE HYDROCHLORIDE
     Indication: Depression
     Dosage: UNK
  16. TOPIRAMATE [Concomitant]
     Active Substance: TOPIRAMATE
     Indication: Migraine
     Dosage: UNK
  17. FOLIC ACID [Concomitant]
     Active Substance: FOLIC ACID
     Indication: Anaemia
     Dosage: UNK
     Route: 048
  18. NORTRIPTYLINE [Concomitant]
     Active Substance: NORTRIPTYLINE
     Indication: Fibromyalgia
     Dosage: 30 MILLIGRAM
     Route: 048
  19. LORAZEPAM [Concomitant]
     Active Substance: LORAZEPAM
     Indication: Insomnia
     Dosage: 12 MILLIGRAM
     Route: 048
  20. MELATONIN [Concomitant]
     Active Substance: MELATONIN
     Indication: Insomnia
     Dosage: UNK
  21. METHOTREXATE [Concomitant]
     Active Substance: METHOTREXATE
     Dosage: 10 MILLIGRAM
     Route: 058
  22. TOPIRAMATE [Concomitant]
     Active Substance: TOPIRAMATE
     Dosage: 20 MILLIGRAM
     Route: 048
  23. DULOXETINE [Concomitant]
     Active Substance: DULOXETINE
     Dosage: 120 MILLIGRAM
     Route: 048
  24. Reactine [Concomitant]
     Dosage: 10 MILLIGRAM
     Route: 048
  25. ESTROGEL [Concomitant]
     Active Substance: ESTRADIOL
     Dosage: UNK
     Route: 061
  26. VITAMIN C [Concomitant]
     Active Substance: ASCORBIC ACID
     Dosage: UNK
     Route: 048

REACTIONS (21)
  - Crohn^s disease [Unknown]
  - COVID-19 [Recovered/Resolved]
  - Abscess [Unknown]
  - Migraine [Unknown]
  - Diarrhoea [Unknown]
  - Infrequent bowel movements [Unknown]
  - Lung hyperinflation [Unknown]
  - Pain [Unknown]
  - Abdominal pain upper [Unknown]
  - Treatment noncompliance [Unknown]
  - Drug ineffective [Unknown]
  - Off label use [Unknown]
  - Stress [Unknown]
  - Vomiting [Unknown]
  - Nasal congestion [Not Recovered/Not Resolved]
  - Anal fissure [Unknown]
  - Headache [Not Recovered/Not Resolved]
  - Arthralgia [Unknown]
  - Influenza [Unknown]
  - Nausea [Recovered/Resolved]
  - Pyrexia [Not Recovered/Not Resolved]

NARRATIVE: CASE EVENT DATE: 20210309
